FAERS Safety Report 25894941 (Version 1)
Quarter: 2025Q4

REPORT INFORMATION
  Report Type: Spontaneous
  Country: US (occurrence: US)
  Receive Date: 20251008
  Receipt Date: 20251008
  Transmission Date: 20260118
  Serious: No
  Sender: CHIESI
  Company Number: US-CHIESI-2025CHF04340

PATIENT
  Sex: Female
  Weight: 81.651 kg

DRUGS (1)
  1. FILSUVEZ [Suspect]
     Active Substance: BIRCH TRITERPENES
     Indication: Epidermolysis bullosa
     Dosage: UNK, PRN
     Route: 061
     Dates: start: 20250528

REACTIONS (2)
  - Wound complication [Recovering/Resolving]
  - Product complaint [Recovered/Resolved]

NARRATIVE: CASE EVENT DATE: 20250101
